FAERS Safety Report 6359322-X (Version None)
Quarter: 2009Q3

REPORT INFORMATION
  Report Type: 
  Country: None (occurrence: None)
  Receive Date: 20090917
  Receipt Date: 20081002
  Transmission Date: 20100115
  Serious: Yes (Hospitalization)
  Sender: FDA-Public Use
  Company Number: JP-NOVOPROD-280059

PATIENT
  Age: 49 Year
  Sex: Male
  Weight: 71 kg

DRUGS (2)
  1. NOVORAPID 30 MIX CHU FLEXPEN [Suspect]
     Indication: TYPE 2 DIABETES MELLITUS
     Dosage: 1500 IU, UNK
     Dates: start: 20080920, end: 20080920
  2. NOVORAPID 30 MIX CHU FLEXPEN [Suspect]
     Dosage: 16 IU (8-0-8)
     Route: 058
     Dates: end: 20080920

REACTIONS (3)
  - BLOOD GLUCOSE DECREASED [None]
  - INTENTIONAL OVERDOSE [None]
  - SUICIDE ATTEMPT [None]
